FAERS Safety Report 17402501 (Version 17)
Quarter: 2025Q2

REPORT INFORMATION
  Report Type: Spontaneous
  Country: US (occurrence: US)
  Receive Date: 20200211
  Receipt Date: 20250602
  Transmission Date: 20250717
  Serious: Yes (Other)
  Sender: PFIZER
  Company Number: US-PFIZER INC-2020058370

PATIENT
  Age: 73 Year
  Sex: Female
  Weight: 107.94 kg

DRUGS (15)
  1. XELJANZ XR [Suspect]
     Active Substance: TOFACITINIB CITRATE
     Indication: Rheumatoid arthritis
     Dosage: 11 MG, 1X/DAY IN THE MORNING
     Route: 048
     Dates: start: 2018
  2. VERAPAMIL [Concomitant]
     Active Substance: VERAPAMIL HYDROCHLORIDE
     Indication: Migraine
     Dosage: 240 MG, 1X/DAY
  3. VERAPAMIL [Concomitant]
     Active Substance: VERAPAMIL HYDROCHLORIDE
     Indication: Hypertension
  4. DIAZEPAM [Concomitant]
     Active Substance: DIAZEPAM
     Indication: Meniere^s disease
     Dosage: 2 MG, 2X/DAY
     Dates: start: 2015
  5. HYDROCHLOROTHIAZIDE [Concomitant]
     Active Substance: HYDROCHLOROTHIAZIDE
     Indication: Meniere^s disease
     Dosage: 25 MG, 1X/DAY
     Dates: start: 2015
  6. DYPHYLLINE [Concomitant]
     Active Substance: DYPHYLLINE
  7. CALAN [Concomitant]
     Active Substance: VERAPAMIL HYDROCHLORIDE
  8. CALCIUM\VITAMIN D [Concomitant]
     Active Substance: CALCIUM\VITAMIN D
     Dosage: UNK, DAILY
  9. CENTRUM SILVER [ASCORBIC ACID;BETACAROTENE;BIOTIN;CALCIUM;CHROMIUM;COL [Concomitant]
     Dosage: UNK, DAILY
  10. DICLOFENAC [Concomitant]
     Active Substance: DICLOFENAC
  11. FIBERCON [Concomitant]
     Active Substance: CALCIUM POLYCARBOPHIL
     Dosage: UNK, 2X/DAY
  12. TYLENOL [Concomitant]
     Active Substance: ACETAMINOPHEN
  13. VALIUM [Concomitant]
     Active Substance: DIAZEPAM
  14. MOTRIN [Concomitant]
     Active Substance: IBUPROFEN
  15. CHOLECALCIFEROL [Concomitant]
     Active Substance: CHOLECALCIFEROL

REACTIONS (11)
  - Pulmonary fibrosis [Unknown]
  - Sinusitis [Unknown]
  - Pain [Unknown]
  - Sinus headache [Unknown]
  - Oropharyngeal pain [Recovered/Resolved]
  - Dysphonia [Unknown]
  - Dyspnoea [Unknown]
  - Dizziness postural [Unknown]
  - Movement disorder [Unknown]
  - Malaise [Unknown]
  - Vertigo [Unknown]

NARRATIVE: CASE EVENT DATE: 20200201
